FAERS Safety Report 4542205-5 (Version None)
Quarter: 2004Q4

REPORT INFORMATION
  Report Type: 
  Country: None (occurrence: None)
  Receive Date: 20041230
  Receipt Date: 20041221
  Transmission Date: 20050328
  Serious: Yes (Life-Threatening, Hospitalization)
  Sender: FDA-Public Use
  Company Number: CA-BRISTOL-MYERS SQUIBB COMPANY-12807244

PATIENT
  Age: 57 Year
  Sex: Female
  Weight: 48 kg

DRUGS (10)
  1. HOLOXAN [Suspect]
     Indication: LUNG NEOPLASM MALIGNANT
     Dosage: THERAPY DATES 16-SEP TO 18-NOV-2004; DAYS 1 AND 8
     Route: 042
     Dates: start: 20041118, end: 20041118
  2. MESNA [Suspect]
     Indication: PROPHYLAXIS
     Dosage: THERAPY DATES 16-SEP-2004 AND 18-NOV-2004; DAYS 1 AND 8
     Route: 042
     Dates: start: 20041118, end: 20041118
  3. MESNA [Suspect]
     Dosage: THERAPY DATES 16-SEP-2004 AND 18-NOV-2004; DAYS 1 AND 8
     Route: 048
     Dates: start: 20041118, end: 20041118
  4. VINORELBINE [Suspect]
     Indication: LUNG NEOPLASM MALIGNANT
     Dosage: THERAPY DATES 16-SEP TO 18-NOV-2004; DAYS 1 AND 8
     Route: 042
     Dates: start: 20041118, end: 20041118
  5. CELEBREX [Concomitant]
  6. HYDROMORPH CONTIN [Concomitant]
  7. COLACE [Concomitant]
  8. GRAVOL TAB [Concomitant]
  9. PREMARIN [Concomitant]
  10. AMITID [Concomitant]

REACTIONS (2)
  - DIVERTICULAR PERFORATION [None]
  - SEPSIS [None]
